FAERS Safety Report 17847196 (Version 2)
Quarter: 2020Q2

REPORT INFORMATION
  Report Type: Spontaneous
  Country: US (occurrence: MX)
  Receive Date: 20200601
  Receipt Date: 20200612
  Transmission Date: 20200714
  Serious: Yes (Death)
  Sender: FDA-Public Use
  Company Number: MX-BIOMARINAP-MX-2020-130321

PATIENT
  Age: 17 Year
  Sex: Female

DRUGS (1)
  1. ALDURAZYME [Suspect]
     Active Substance: LARONIDASE
     Indication: MUCOPOLYSACCHARIDOSIS I
     Dosage: 7 DOSAGE FORM, QOW
     Route: 042
     Dates: start: 20111026

REACTIONS (4)
  - Inappropriate schedule of product administration [Unknown]
  - Dyspnoea [Fatal]
  - Decreased appetite [Unknown]
  - Fatigue [Unknown]

NARRATIVE: CASE EVENT DATE: 20200514
